FAERS Safety Report 7448208-5 (Version None)
Quarter: 2011Q2

REPORT INFORMATION
  Report Type: 
  Country: None (occurrence: None)
  Receive Date: 20110429
  Receipt Date: 20100420
  Transmission Date: 20111010
  Serious: No
  Sender: FDA-Public Use
  Company Number: US-ASTRAZENECA-2010SE17806

PATIENT
  Age: 57 Year
  Sex: Female
  Weight: 68 kg

DRUGS (4)
  1. NEXIUM [Suspect]
     Indication: GASTROOESOPHAGEAL REFLUX DISEASE
     Route: 048
  2. NIASPAN [Interacting]
     Indication: BLOOD TRIGLYCERIDES INCREASED
     Dosage: 2000 MG , 1000 MG 1 IN 1 DAILY
     Route: 048
     Dates: start: 20040101, end: 20070501
  3. NIASPAN [Interacting]
     Dosage: COATED 2 TABLETS AT BED TIME
     Route: 048
     Dates: start: 20040101
  4. LOVASTATIN [Concomitant]

REACTIONS (6)
  - BLOOD TRIGLYCERIDES INCREASED [None]
  - DRUG INEFFECTIVE [None]
  - DRUG INTERACTION [None]
  - BLOOD GLUCOSE INCREASED [None]
  - HOT FLUSH [None]
  - UNEVALUABLE EVENT [None]
